FAERS Safety Report 8189720-3 (Version None)
Quarter: 2012Q1

REPORT INFORMATION
  Report Type: 
  Country: None (occurrence: None)
  Receive Date: 20120307
  Receipt Date: 20120227
  Transmission Date: 20120608
  Serious: Yes (Hospitalization)
  Sender: FDA-Public Use
  Company Number: CA-ASTRAZENECA-2012SE13464

PATIENT
  Age: 27759 Day
  Sex: Male

DRUGS (8)
  1. PLAVIX [Suspect]
     Indication: CORONARY ARTERY DISEASE
     Route: 048
     Dates: start: 20110623, end: 20120215
  2. COVERYSL [Concomitant]
     Indication: HYPERTENSION
     Route: 048
  3. DUTASTERIDE [Concomitant]
     Indication: BENIGN PROSTATIC HYPERPLASIA
     Route: 048
  4. CRESTOR [Concomitant]
     Indication: HYPERLIPIDAEMIA
     Route: 048
  5. PLAVIX [Suspect]
     Route: 048
     Dates: start: 20120218, end: 20120221
  6. VITALUX [Concomitant]
     Indication: MACULAR DEGENERATION
     Route: 048
  7. ASPIRIN [Concomitant]
     Route: 048
     Dates: end: 20120206
  8. ASPIRIN [Concomitant]
     Route: 048
     Dates: start: 20120218

REACTIONS (1)
  - BENIGN PROSTATIC HYPERPLASIA [None]
